FAERS Safety Report 16046489 (Version 1)
Quarter: 2019Q1

REPORT INFORMATION
  Report Type: Report from Study
  Country: BR (occurrence: BR)
  Receive Date: 20190307
  Receipt Date: 20190307
  Transmission Date: 20190418
  Serious: Yes (Other)
  Sender: FDA-Public Use
  Company Number: PHHY2019BR049336

PATIENT
  Sex: Male
  Weight: 56 kg

DRUGS (2)
  1. COSENTYX [Suspect]
     Active Substance: SECUKINUMAB
     Indication: PSORIATIC ARTHROPATHY
     Dosage: 300 MG, UNK
     Route: 058
     Dates: start: 20181228
  2. COSENTYX [Suspect]
     Active Substance: SECUKINUMAB
     Dosage: 150 MG, ONCE EVERY 15 DAYS
     Route: 058
     Dates: start: 20190222

REACTIONS (3)
  - Erysipelas [Unknown]
  - Psoriasis [Recovering/Resolving]
  - Product prescribing error [Not Recovered/Not Resolved]
